FAERS Safety Report 9026664 (Version 1)
Quarter: 2012Q4

REPORT INFORMATION
  Report Type: Spontaneous
  Country: CA (occurrence: None)
  Receive Date: 20121231
  Receipt Date: 20121231
  Transmission Date: 20130627
  Serious: Yes (Life-Threatening)
  Sender: FDA-Public Use
  Company Number: AECAN201200555

PATIENT
  Age: 83 Year
  Sex: Female

DRUGS (1)
  1. GAMUNEX [Suspect]
     Indication: IMMUNODEFICIENCY SECONDARY TO NEOPLASM
     Route: 042
     Dates: start: 20121121

REACTIONS (1)
  - Transfusion-related acute lung injury [None]
